FAERS Safety Report 8121263 (Version 4)
Quarter: 2014Q4

REPORT INFORMATION
  Report Type: Spontaneous
  Country: JP (occurrence: JP)
  Receive Date: 20110906
  Receipt Date: 20141208
  Transmission Date: 20150529
  Serious: Yes (Congenital Anomaly, Other)
  Sender: FDA-Public Use
  Company Number: PHHY2011JP77953

PATIENT
  Sex: Female
  Weight: 3 kg

DRUGS (2)
  1. FEMARA [Suspect]
     Active Substance: LETROZOLE
     Indication: PRODUCT USED FOR UNKNOWN INDICATION
     Dosage: 5 MG, QD (MOTHER DOSE)
     Route: 064
  2. FOLLISTIM [Concomitant]
     Active Substance: FOLLITROPIN
     Indication: PRODUCT USED FOR UNKNOWN INDICATION
     Dosage: UNK
     Route: 065

REACTIONS (8)
  - Developmental hip dysplasia [Unknown]
  - Talipes [Unknown]
  - Syndactyly [Unknown]
  - Limb malformation [Unknown]
  - Foetal exposure timing unspecified [Unknown]
  - Jaundice [Unknown]
  - Congenital knee dislocation [Unknown]
  - Fibula agenesis [Unknown]
